FAERS Safety Report 5452920-7 (Version None)
Quarter: 2007Q3

REPORT INFORMATION
  Report Type: 
  Country: None (occurrence: None)
  Receive Date: 20070914
  Receipt Date: 20070912
  Transmission Date: 20080115
  Serious: Yes (Hospitalization)
  Sender: FDA-Public Use
  Company Number: B0486947A

PATIENT
  Age: 26 Year
  Sex: Male

DRUGS (1)
  1. CLAMOXYL [Suspect]
     Indication: BRONCHITIS
     Dosage: 1TAB SINGLE DOSE
     Route: 048
     Dates: start: 20070626, end: 20070626

REACTIONS (5)
  - ANAPHYLACTIC SHOCK [None]
  - DYSPNOEA [None]
  - NAUSEA [None]
  - PHARYNGOLARYNGEAL PAIN [None]
  - URTICARIA [None]
